FAERS Safety Report 7563522-0 (Version None)
Quarter: 2011Q2

REPORT INFORMATION
  Report Type: 
  Country: None (occurrence: None)
  Receive Date: 20110622
  Receipt Date: 20110609
  Transmission Date: 20111010
  Serious: Yes (Death, Hospitalization)
  Sender: FDA-Public Use
  Company Number: JP-AMGEN-JPNCT2011027432

PATIENT
  Age: 63 Year
  Sex: Male
  Weight: 56 kg

DRUGS (4)
  1. FAMOTIDINE [Concomitant]
     Route: 042
     Dates: start: 20110324, end: 20110513
  2. DECADRON [Concomitant]
     Route: 042
     Dates: start: 20110324, end: 20110513
  3. PANITUMUMAB [Suspect]
     Indication: COLORECTAL CANCER
     Dosage: 3 MG/KG, Q2WK
     Route: 041
     Dates: start: 20110209, end: 20110513
  4. POLARAMINE [Concomitant]
     Route: 042
     Dates: start: 20110324, end: 20110513

REACTIONS (4)
  - PULMONARY INFARCTION [None]
  - WEIGHT DECREASED [None]
  - MALAISE [None]
  - DECREASED APPETITE [None]
